FAERS Safety Report 5950378-2 (Version None)
Quarter: 2008Q4

REPORT INFORMATION
  Report Type: 
  Country: None (occurrence: None)
  Receive Date: 20081112
  Receipt Date: 20081107
  Transmission Date: 20090506
  Serious: Yes (Death)
  Sender: FDA-Public Use
  Company Number: PHEH2008US10051

PATIENT
  Sex: Male
  Weight: 51.8 kg

DRUGS (1)
  1. ZOMETA [Suspect]
     Indication: METASTASES TO BONE
     Dosage: 4 MG EVERY 30 DAYS
     Dates: start: 20080701, end: 20080910

REACTIONS (1)
  - LUNG CANCER METASTATIC [None]
